FAERS Safety Report 23646098 (Version 1)
Quarter: 2024Q1

REPORT INFORMATION
  Report Type: Report from Study
  Country: US (occurrence: US)
  Receive Date: 20240319
  Receipt Date: 20240319
  Transmission Date: 20240409
  Serious: No
  Sender: FDA-Public Use
  Company Number: US-ESPERIONTHERAPEUTICS-2023USA00388

PATIENT
  Age: 67 Year
  Sex: Female

DRUGS (2)
  1. BEMPEDOIC ACID\EZETIMIBE [Suspect]
     Active Substance: BEMPEDOIC ACID\EZETIMIBE
     Indication: Product used for unknown indication
     Dosage: UNK
     Route: 065
     Dates: end: 202304
  2. LIPITOR [Concomitant]
     Active Substance: ATORVASTATIN CALCIUM
     Dosage: UNK
     Route: 065

REACTIONS (4)
  - Blood test abnormal [Unknown]
  - High density lipoprotein increased [Unknown]
  - Low density lipoprotein increased [Unknown]
  - Blood triglycerides increased [Unknown]
